FAERS Safety Report 8926296 (Version 2)
Quarter: 2013Q1

REPORT INFORMATION
  Report Type: Spontaneous
  Country: CA (occurrence: CA)
  Receive Date: 20121126
  Receipt Date: 20130118
  Transmission Date: 20140127
  Serious: Yes (Hospitalization)
  Sender: FDA-Public Use
  Company Number: PHHY2012CA107567

PATIENT
  Sex: Female

DRUGS (1)
  1. GILENYA [Suspect]
     Indication: RELAPSING-REMITTING MULTIPLE SCLEROSIS
     Dosage: 0.5 MG, QD
     Route: 048
     Dates: start: 20121112

REACTIONS (6)
  - Ligament sprain [Unknown]
  - Road traffic accident [Unknown]
  - Diplopia [Recovered/Resolved]
  - Cervicogenic headache [Recovered/Resolved]
  - Injury [Unknown]
  - Heart rate decreased [Recovered/Resolved]
